FAERS Safety Report 9971163 (Version 1)
Quarter: 2014Q1

REPORT INFORMATION
  Report Type: Report from Study
  Country: US (occurrence: US)
  Receive Date: 20140306
  Receipt Date: 20140306
  Transmission Date: 20141002
  Serious: No
  Sender: FDA-Public Use
  Company Number: US-ABBVIE-13P-163-1148073-00

PATIENT
  Sex: Female
  Weight: 138.92 kg

DRUGS (8)
  1. HUMIRA [Suspect]
     Indication: RHEUMATOID ARTHRITIS
  2. HUMIRA [Suspect]
  3. NAPROXEN [Concomitant]
     Indication: RHEUMATOID ARTHRITIS
  4. PREDNISONE [Concomitant]
     Indication: RHEUMATOID ARTHRITIS
  5. GABAPENTIN [Concomitant]
     Indication: NEURALGIA
  6. GABAPENTIN [Concomitant]
     Indication: INTERVERTEBRAL DISC DEGENERATION
  7. HYDROCODONE [Concomitant]
     Indication: PAIN
  8. TRIAMTERENE [Concomitant]
     Indication: FLUID RETENTION

REACTIONS (8)
  - Deformity [Not Recovered/Not Resolved]
  - Wound [Recovered/Resolved]
  - Infection [Recovered/Resolved]
  - Local swelling [Unknown]
  - Blister [Recovered/Resolved]
  - Infection [Recovered/Resolved]
  - Arthritis [Not Recovered/Not Resolved]
  - Cellulitis [Recovered/Resolved]
